FAERS Safety Report 15395223 (Version 1)
Quarter: 2018Q3

REPORT INFORMATION
  Report Type: Spontaneous
  Country: US (occurrence: US)
  Receive Date: 20180918
  Receipt Date: 20180918
  Transmission Date: 20181010
  Serious: No
  Sender: FDA-Public Use
  Company Number: US-PFIZER INC-2018373093

PATIENT
  Age: 15 Year
  Sex: Male

DRUGS (1)
  1. GENOTROPIN [Suspect]
     Active Substance: SOMATROPIN
     Indication: GROWTH HORMONE DEFICIENCY
     Dosage: 2 MG, DAILY
     Dates: start: 20170816

REACTIONS (11)
  - Blood 25-hydroxycholecalciferol decreased [Unknown]
  - Blood urea nitrogen/creatinine ratio decreased [Unknown]
  - Protein total decreased [Unknown]
  - Blood alkaline phosphatase increased [Unknown]
  - Albumin globulin ratio increased [Unknown]
  - Injection site pain [Unknown]
  - Polydipsia [Unknown]
  - Red blood cell count increased [Unknown]
  - Blood creatinine decreased [Unknown]
  - Thyroxine free decreased [Unknown]
  - Polyuria [Unknown]

NARRATIVE: CASE EVENT DATE: 20180627
